FAERS Safety Report 5477631-3 (Version None)
Quarter: 2007Q4

REPORT INFORMATION
  Report Type: 
  Country: None (occurrence: None)
  Receive Date: 20071003
  Receipt Date: 20071003
  Transmission Date: 20080405
  Serious: No
  Sender: FDA-Public Use
  Company Number: None

PATIENT
  Sex: Female
  Weight: 18 kg

DRUGS (1)
  1. PROPOFOL [Suspect]
     Indication: SEDATION
     Dosage: 300 MG IV
     Route: 042
     Dates: start: 20070427, end: 20070427

REACTIONS (3)
  - ARTHRALGIA [None]
  - ARTHROPATHY [None]
  - PYREXIA [None]
